FAERS Safety Report 13900761 (Version 2)
Quarter: 2017Q3

REPORT INFORMATION
  Report Type: Spontaneous
  Country: US (occurrence: US)
  Receive Date: 20170824
  Receipt Date: 20170922
  Transmission Date: 20171127
  Serious: No
  Sender: FDA-Public Use
  Company Number: US-009507513-1708USA009001

PATIENT
  Age: 18 Year
  Sex: Female
  Weight: 92.97 kg

DRUGS (1)
  1. NEXPLANON [Suspect]
     Active Substance: ETONOGESTREL
     Indication: CONTRACEPTION
     Dosage: 1 IMPLANT, ONCE
     Route: 030
     Dates: start: 20170413, end: 20170824

REACTIONS (4)
  - Weight increased [Unknown]
  - Menstruation irregular [Unknown]
  - Mood swings [Unknown]
  - Device deployment issue [Recovered/Resolved]

NARRATIVE: CASE EVENT DATE: 20170413
